FAERS Safety Report 5454083-0 (Version None)
Quarter: 2007Q3

REPORT INFORMATION
  Report Type: 
  Country: None (occurrence: None)
  Receive Date: 20070917
  Receipt Date: 20070531
  Transmission Date: 20080115
  Serious: Yes (Other)
  Sender: FDA-Public Use
  Company Number: US-ASTRAZENECA-2006UW10876

PATIENT
  Age: 40 Year
  Sex: Female
  Weight: 100.5 kg

DRUGS (6)
  1. SEROQUEL [Suspect]
     Indication: DEPRESSION
     Route: 048
     Dates: start: 20020101, end: 20030101
  2. SEROQUEL [Suspect]
     Indication: SLEEP DISORDER
     Route: 048
     Dates: start: 20020101, end: 20030101
  3. THORAZINE [Concomitant]
  4. OLANZAPINE [Concomitant]
  5. LEXAPRO [Concomitant]
  6. DEXATRIM [Concomitant]

REACTIONS (2)
  - DIABETIC COMA [None]
  - HYPERGLYCAEMIA [None]
